FAERS Safety Report 9962658 (Version 2)
Quarter: 2014Q1

REPORT INFORMATION
  Report Type: Report from Study
  Country: US (occurrence: US)
  Receive Date: 20140305
  Receipt Date: 20140305
  Transmission Date: 20141002
  Serious: No
  Sender: FDA-Public Use
  Company Number: US-ABBVIE-13P-163-1096052-00

PATIENT
  Age: 54 Year
  Sex: Male

DRUGS (9)
  1. HUMIRA [Suspect]
     Indication: CROHN^S DISEASE
     Route: 058
     Dates: start: 20130209, end: 201304
  2. XANAX [Concomitant]
     Indication: ANXIETY
     Route: 048
  3. METOPROLOL TARTRATE [Concomitant]
     Indication: HYPERTENSION
     Route: 048
  4. CITALOPRAM HBR [Concomitant]
     Indication: DEPRESSION
     Route: 048
  5. ASMANEX [Concomitant]
     Indication: ASTHMA
     Route: 055
  6. PROAIR [Concomitant]
     Indication: ASTHMA
  7. VITAMIN D2 [Concomitant]
     Indication: VITAMIN SUPPLEMENTATION
     Dosage: ONCE OR TWICE A WEEK
  8. VITAMIN C [Concomitant]
     Indication: VITAMIN SUPPLEMENTATION
     Route: 048
  9. VITAMIN B12 [Concomitant]
     Indication: VITAMIN SUPPLEMENTATION
     Dosage: DAILY

REACTIONS (1)
  - Drug ineffective [Not Recovered/Not Resolved]
